FAERS Safety Report 8360598-8 (Version None)
Quarter: 2012Q1

REPORT INFORMATION
  Report Type: 
  Country: None (occurrence: None)
  Receive Date: 20120323
  Receipt Date: 20110711
  Transmission Date: 20120608
  Serious: Yes (Disabling, Other)
  Sender: FDA-Public Use
  Company Number: 162-21880-11020484

PATIENT
  Age: 61 Year
  Sex: Female
  Weight: 131.0895 kg

DRUGS (3)
  1. REVLIMID [Suspect]
     Indication: MULTIPLE MYELOMA
     Dosage: 25 MG, EVERY EVENING AT BEDTIME FOR 21 DAYS, PO
     Route: 048
     Dates: start: 20101207
  2. REVLIMID [Suspect]
  3. REVLIMID [Suspect]

REACTIONS (3)
  - FACE OEDEMA [None]
  - RASH [None]
  - OEDEMA PERIPHERAL [None]
